FAERS Safety Report 6031000-6 (Version None)
Quarter: 2009Q1

REPORT INFORMATION
  Report Type: 
  Country: None (occurrence: None)
  Receive Date: 20090106
  Receipt Date: 20090106
  Transmission Date: 20090719
  Serious: Yes (Other)
  Sender: FDA-Public Use
  Company Number: None

PATIENT
  Sex: Female
  Weight: 56.6996 kg

DRUGS (1)
  1. BONIVA [Suspect]
     Indication: OSTEOPENIA
     Dosage: MFG RECOMMENDED EVERY 3 MONTHS IV
     Route: 042
     Dates: start: 20081229, end: 20081229

REACTIONS (6)
  - ERYTHEMA [None]
  - INCORRECT ROUTE OF DRUG ADMINISTRATION [None]
  - INFUSION SITE EXTRAVASATION [None]
  - MIDDLE INSOMNIA [None]
  - PAIN [None]
  - SWELLING [None]
